FAERS Safety Report 4994797-X (Version None)
Quarter: 2006Q2

REPORT INFORMATION
  Report Type: 
  Country: None (occurrence: None)
  Receive Date: 20060503
  Receipt Date: 20060420
  Transmission Date: 20061013
  Serious: Yes (Other)
  Sender: FDA-Public Use
  Company Number: 2005153558

PATIENT
  Sex: Male

DRUGS (1)
  1. VIAGRA [Suspect]
     Indication: ERECTILE DYSFUNCTION
     Dosage: ORAL
     Route: 048

REACTIONS (5)
  - BLINDNESS UNILATERAL [None]
  - CHRONIC SINUSITIS [None]
  - CYST [None]
  - OPTIC ISCHAEMIC NEUROPATHY [None]
  - POLYP [None]
